FAERS Safety Report 20045428 (Version 1)
Quarter: 2021Q4

REPORT INFORMATION
  Report Type: Spontaneous
  Country: US (occurrence: US)
  Receive Date: 20211108
  Receipt Date: 20211108
  Transmission Date: 20220303
  Serious: Yes (Other)
  Sender: FDA-Public Use
  Company Number: MIQ-07062021-425(V1)

PATIENT
  Age: 79 Year
  Sex: Female

DRUGS (1)
  1. DICYCLOMINE HYDROCHLORIDE [Suspect]
     Active Substance: DICYCLOMINE HYDROCHLORIDE
     Indication: Antiallergic therapy
     Dosage: 10 MG, QD
     Route: 048
     Dates: start: 20210704, end: 20210704

REACTIONS (6)
  - Anaphylactic reaction [Unknown]
  - Pharyngeal swelling [Unknown]
  - Eye swelling [Unknown]
  - Swelling face [Unknown]
  - Urticaria [Unknown]
  - Off label use [Unknown]

NARRATIVE: CASE EVENT DATE: 20210704
